FAERS Safety Report 19902013 (Version 1)
Quarter: 2021Q3

REPORT INFORMATION
  Report Type: Spontaneous
  Country: US (occurrence: US)
  Receive Date: 20210930
  Receipt Date: 20210930
  Transmission Date: 20211014
  Serious: No
  Sender: FDA-Public Use
  Company Number: US-GLAXOSMITHKLINE-US2021203359

PATIENT

DRUGS (1)
  1. FLONASE ALLERGY RELIEF [Suspect]
     Active Substance: FLUTICASONE PROPIONATE
     Indication: SINUS CONGESTION
     Dosage: UNK

REACTIONS (12)
  - Hyperhidrosis [Unknown]
  - Chest discomfort [Unknown]
  - Palpitations [Unknown]
  - Anxiety [Unknown]
  - Morbid thoughts [Unknown]
  - Cough [Unknown]
  - Panic attack [Unknown]
  - Nausea [Unknown]
  - Insomnia [Unknown]
  - Throat irritation [Unknown]
  - Psychomotor hyperactivity [Unknown]
  - Depression [Unknown]
